FAERS Safety Report 4539648-2 (Version None)
Quarter: 2004Q4

REPORT INFORMATION
  Report Type: 
  Country: None (occurrence: None)
  Receive Date: 20041228
  Receipt Date: 20041202
  Transmission Date: 20050328
  Serious: Yes (Life-Threatening, Hospitalization)
  Sender: FDA-Public Use
  Company Number: FR-MERCK-0412FRA00017

PATIENT
  Age: 78 Year
  Sex: Male

DRUGS (5)
  1. INDOCIN [Suspect]
     Route: 048
  2. OMEPRAZOLE [Concomitant]
     Route: 048
  3. METRONIDAZOLE [Concomitant]
     Route: 048
     Dates: start: 20041023, end: 20041023
  4. INDOCIN [Suspect]
     Route: 048
     Dates: start: 20041023, end: 20041023
  5. BETAMETHASONE VALERATE [Concomitant]
     Route: 061

REACTIONS (5)
  - ANAPHYLACTIC SHOCK [None]
  - ANGIONEUROTIC OEDEMA [None]
  - FALL [None]
  - HYPOTENSION [None]
  - MALAISE [None]
